FAERS Safety Report 4680954-9 (Version None)
Quarter: 2005Q2

REPORT INFORMATION
  Report Type: 
  Country: None (occurrence: None)
  Receive Date: 20050601
  Receipt Date: 20050525
  Transmission Date: 20051028
  Serious: Yes (Life-Threatening, Hospitalization)
  Sender: FDA-Public Use
  Company Number: 214798

PATIENT
  Age: 56 Year
  Sex: Male
  Weight: 85.2 kg

DRUGS (5)
  1. AVASTIN [Suspect]
     Indication: METASTATIC RENAL CELL CARCINOMA
     Dosage: 455 MG, Q2W, INTRAVENOUS
     Route: 042
     Dates: start: 20050127
  2. BENICAR [Concomitant]
  3. TOPROL-XL [Concomitant]
  4. PERCOCET [Concomitant]
  5. ATIVAN [Concomitant]

REACTIONS (1)
  - DIVERTICULAR PERFORATION [None]
